FAERS Safety Report 13361833 (Version 2)
Quarter: 2017Q2

REPORT INFORMATION
  Report Type: Spontaneous
  Country: US (occurrence: US)
  Receive Date: 20170323
  Receipt Date: 20170414
  Transmission Date: 20170830
  Serious: No
  Sender: FDA-Public Use
  Company Number: US-AMGEN-USASP2017036910

PATIENT
  Age: 34 Year
  Sex: Female

DRUGS (3)
  1. XELJANZ XR [Suspect]
     Active Substance: TOFACITINIB CITRATE
     Indication: PRODUCT USED FOR UNKNOWN INDICATION
     Dosage: 11 MG, QD
     Route: 065
  2. ENBREL [Suspect]
     Active Substance: ETANERCEPT
     Indication: PRODUCT USED FOR UNKNOWN INDICATION
     Dosage: UNK
     Route: 065
     Dates: start: 201702
  3. ABATACEPT [Concomitant]
     Active Substance: ABATACEPT
     Dosage: 125 MG, QWK
     Route: 058

REACTIONS (7)
  - Arthralgia [Unknown]
  - Synovitis [Unknown]
  - Erythema [Unknown]
  - Feeling hot [Unknown]
  - Drug ineffective [Unknown]
  - Back pain [Unknown]
  - Effusion [Unknown]

NARRATIVE: CASE EVENT DATE: 2017
